FAERS Safety Report 19476111 (Version 1)
Quarter: 2021Q2

REPORT INFORMATION
  Report Type: Spontaneous
  Country: IN (occurrence: IN)
  Receive Date: 20210630
  Receipt Date: 20210630
  Transmission Date: 20210717
  Serious: Yes (Hospitalization)
  Sender: FDA-Public Use
  Company Number: IN-LUPIN PHARMACEUTICALS INC.-2021-10465

PATIENT
  Age: 41 Year
  Sex: Female

DRUGS (18)
  1. VANCOMYCIN [Suspect]
     Active Substance: VANCOMYCIN
     Indication: CORNEAL ABSCESS
     Dosage: UNK, INTRASTROMAL (1 MG/0.1 ML), GIVEN AT FOUR SPOTS, 0.1 ML EACH, USING 30? G NEEDLE, ROUGHLY 2 MM
     Route: 065
  2. CEFTAZIDIME. [Suspect]
     Active Substance: CEFTAZIDIME
     Indication: EVIDENCE BASED TREATMENT
     Dosage: 1 GRAM, BID
     Route: 042
  3. ACETAZOLAMIDE. [Concomitant]
     Active Substance: ACETAZOLAMIDE
     Indication: CORNEAL ABSCESS
  4. VANCOMYCIN [Suspect]
     Active Substance: VANCOMYCIN
     Indication: EVIDENCE BASED TREATMENT
     Dosage: 500 MILLIGRAM, QID
     Route: 042
  5. VANCOMYCIN [Suspect]
     Active Substance: VANCOMYCIN
     Dosage: 5 PERCENT, FOUR TIMES AN HOUR, TOPICAL FORTIFIED DROPS, DOSE REDUCED
     Route: 061
  6. ATROPINE SULFATE. [Suspect]
     Active Substance: ATROPINE SULFATE
     Indication: CORNEAL ABSCESS
  7. PREDNISOLONE ACETATE. [Concomitant]
     Active Substance: PREDNISOLONE ACETATE
     Indication: PRODUCT USED FOR UNKNOWN INDICATION
     Dosage: 1 PERCENT, SIX TIMES A DAY
     Route: 061
  8. ACETAZOLAMIDE. [Concomitant]
     Active Substance: ACETAZOLAMIDE
     Indication: EVIDENCE BASED TREATMENT
     Dosage: 250 MILLIGRAM, TID
     Route: 065
  9. CEFTAZIDIME. [Suspect]
     Active Substance: CEFTAZIDIME
     Dosage: 5 PERCENT, BID, ONE TIME AN HOUR
     Route: 061
  10. TOBRAMYCIN. [Suspect]
     Active Substance: TOBRAMYCIN
     Indication: ANTIBIOTIC PROPHYLAXIS
     Dosage: 0.3 PERCENT, QOD
     Route: 061
  11. ATROPINE SULFATE. [Suspect]
     Active Substance: ATROPINE SULFATE
     Indication: STAPHYLOCOCCAL INFECTION
  12. ATROPINE SULFATE. [Suspect]
     Active Substance: ATROPINE SULFATE
     Indication: EVIDENCE BASED TREATMENT
     Dosage: 1 PERCENT, TID
     Route: 061
  13. VANCOMYCIN [Suspect]
     Active Substance: VANCOMYCIN
     Indication: STAPHYLOCOCCAL INFECTION
     Dosage: 5 PERCENT, ONE TIME AN HOUR, TOPICAL FORTIFIED DROPS
     Route: 061
  14. ACETAZOLAMIDE. [Concomitant]
     Active Substance: ACETAZOLAMIDE
     Indication: STAPHYLOCOCCAL INFECTION
  15. MOXIFLOXACIN HCL [Suspect]
     Active Substance: MOXIFLOXACIN
     Indication: ANTIBIOTIC PROPHYLAXIS
     Dosage: 0.5 PERCENT, INTRACAMERAL
     Route: 031
  16. HOMATROPINE [Concomitant]
     Active Substance: HOMATROPINE HYDROBROMIDE
     Indication: PRODUCT USED FOR UNKNOWN INDICATION
     Dosage: 2 PERCENT, BID
     Route: 061
  17. PREDNISOLONE. [Concomitant]
     Active Substance: PREDNISOLONE
     Indication: INFLAMMATION
     Dosage: 50 MILLIGRAM, QD
     Route: 048
  18. PANTOPRAZOLE [Concomitant]
     Active Substance: PANTOPRAZOLE
     Indication: PRODUCT USED FOR UNKNOWN INDICATION
     Dosage: 40 MILLIGRAM
     Route: 048

REACTIONS (3)
  - Drug ineffective [Unknown]
  - Corneal disorder [Unknown]
  - Toxicity to various agents [Unknown]
